FAERS Safety Report 7985634-X (Version None)
Quarter: 2011Q4

REPORT INFORMATION
  Report Type: 
  Country: None (occurrence: None)
  Receive Date: 20111216
  Receipt Date: 20111214
  Transmission Date: 20120403
  Serious: Yes (Life-Threatening, Other)
  Sender: FDA-Public Use
  Company Number: US-BRISTOL-MYERS SQUIBB COMPANY-16294126

PATIENT
  Age: 28 Year
  Sex: Female

DRUGS (3)
  1. CYMBALTA [Suspect]
  2. ABILIFY [Suspect]
     Dosage: 1DF:28 2MG TABS
  3. TRAZODONE HCL [Suspect]

REACTIONS (2)
  - SUICIDE ATTEMPT [None]
  - OVERDOSE [None]
